FAERS Safety Report 18322426 (Version 1)
Quarter: 2020Q3

REPORT INFORMATION
  Report Type: Spontaneous
  Country: US (occurrence: US)
  Receive Date: 20200928
  Receipt Date: 20200928
  Transmission Date: 20201103
  Serious: Yes (Disabling)
  Sender: FDA-Public Use
  Company Number: None

PATIENT
  Age: 54 Year
  Sex: Female

DRUGS (1)
  1. DULOXETINE DR 20MG CAPSULES [Suspect]
     Active Substance: DULOXETINE
     Indication: PAIN
     Route: 048
     Dates: start: 20200501, end: 20200920

REACTIONS (3)
  - Paraesthesia [None]
  - Feeling abnormal [None]
  - Anorgasmia [None]

NARRATIVE: CASE EVENT DATE: 20200801
